FAERS Safety Report 18082450 (Version 2)
Quarter: 2020Q3

REPORT INFORMATION
  Report Type: Spontaneous
  Country: ES (occurrence: ES)
  Receive Date: 20200729
  Receipt Date: 20200810
  Transmission Date: 20201103
  Serious: Yes (Death)
  Sender: FDA-Public Use
  Company Number: ES-UNICHEM PHARMACEUTICALS (USA) INC-UCM202007-000825

PATIENT
  Age: 41 Year
  Sex: Male

DRUGS (6)
  1. VENLAFAXINE [Suspect]
     Active Substance: VENLAFAXINE HYDROCHLORIDE
     Indication: ADJUSTMENT DISORDER WITH DEPRESSED MOOD
  2. TRAMADOL HCL [Suspect]
     Active Substance: TRAMADOL HYDROCHLORIDE
     Indication: PAIN
     Dosage: UNKNOWN
  3. DIAZEPAM. [Concomitant]
     Active Substance: DIAZEPAM
     Indication: PRODUCT USED FOR UNKNOWN INDICATION
     Dosage: OCCASIONALLY
  4. TRAMADOL HCL [Suspect]
     Active Substance: TRAMADOL HYDROCHLORIDE
     Dosage: 6 AND 12 TABLETS/DAY
  5. PARACETAMOL [Concomitant]
     Active Substance: ACETAMINOPHEN
     Indication: PAIN
  6. MIDAZOLAM. [Concomitant]
     Active Substance: MIDAZOLAM
     Indication: PRODUCT USED FOR UNKNOWN INDICATION

REACTIONS (16)
  - Forearm fracture [Fatal]
  - Mydriasis [Fatal]
  - Cardiac arrest [Fatal]
  - Open fracture [Fatal]
  - Fall [Fatal]
  - Bradycardia [Fatal]
  - Accident [Fatal]
  - Coma [Fatal]
  - Pulmonary contusion [Fatal]
  - Toxicity to various agents [Fatal]
  - Hypotension [Fatal]
  - Skull fractured base [Fatal]
  - Craniocerebral injury [Fatal]
  - Ear haemorrhage [Fatal]
  - Pulse absent [Fatal]
  - Haemorrhage [Fatal]
